FAERS Safety Report 24961154 (Version 1)
Quarter: 2025Q1

REPORT INFORMATION
  Report Type: Spontaneous
  Country: US (occurrence: None)
  Receive Date: 20250211
  Receipt Date: 20250211
  Transmission Date: 20250408
  Serious: Yes (Other)
  Sender: FDA-CTU
  Company Number: None

PATIENT
  Age: 32 Year
  Sex: Female
  Weight: 73.35 kg

DRUGS (3)
  1. PANZYGA [Suspect]
     Active Substance: HUMAN IMMUNOGLOBULIN G
     Indication: Stiff person syndrome
     Dosage: OTHER FREQUENCY : 2 DAYS Q 3 WEEKS;?
     Route: 041
  2. Diphenhydramine 25mg PO premed [Concomitant]
     Dates: start: 20250205, end: 20250205
  3. Acetaminophen 650mg PO premed [Concomitant]
     Dates: start: 20250205, end: 20250205

REACTIONS (5)
  - Infusion related reaction [None]
  - Urticaria [None]
  - Dyspnoea [None]
  - Lip swelling [None]
  - Pruritus [None]

NARRATIVE: CASE EVENT DATE: 20250205
